FAERS Safety Report 5741544-X (Version None)
Quarter: 2008Q2

REPORT INFORMATION
  Report Type: 
  Country: None (occurrence: None)
  Receive Date: 20080519
  Receipt Date: 20080407
  Transmission Date: 20081010
  Serious: Yes (Other)
  Sender: FDA-Public Use
  Company Number: US-BAYER-200810759BCC

PATIENT
  Age: 30 Year
  Sex: Male
  Weight: 86 kg

DRUGS (2)
  1. ALKA-SELTZER ORIGINAL EFFERVESCENT TABLETS [Suspect]
     Indication: HEADACHE
     Route: 048
     Dates: start: 19880101
  2. THEOPHYLLINE [Concomitant]

REACTIONS (1)
  - PHARYNGEAL OEDEMA [None]
